FAERS Safety Report 4351001-3 (Version None)
Quarter: 2004Q2

REPORT INFORMATION
  Report Type: 
  Country: None (occurrence: None)
  Receive Date: 20040428
  Receipt Date: 20040414
  Transmission Date: 20050107
  Serious: Yes (Death, Hospitalization)
  Sender: FDA-Public Use
  Company Number: 2004IM000477

PATIENT
  Age: 62 Year
  Sex: Male

DRUGS (3)
  1. ACTIMMUNE [Suspect]
     Indication: INTERSTITIAL LUNG DISEASE
     Dosage: 100 UG;TIW;SUBCUTANEOUS
     Route: 058
     Dates: start: 20040310, end: 20040301
  2. PREDNISONE [Concomitant]
  3. ALBUTEROL [Concomitant]

REACTIONS (4)
  - CHILLS [None]
  - INFLUENZA LIKE ILLNESS [None]
  - PYREXIA [None]
  - RESPIRATORY FAILURE [None]
